FAERS Safety Report 20777766 (Version 2)
Quarter: 2022Q2

REPORT INFORMATION
  Report Type: Spontaneous
  Country: US (occurrence: None)
  Receive Date: 20220503
  Receipt Date: 20220520
  Transmission Date: 20220721
  Serious: Yes (Other)
  Sender: FDA-Public Use
  Company Number: US-ROCHE-3088627

PATIENT
  Sex: Male
  Weight: 74.456 kg

DRUGS (7)
  1. PEGASYS [Suspect]
     Active Substance: PEGINTERFERON ALFA-2A
     Indication: Polycythaemia vera
     Route: 065
     Dates: start: 202201, end: 20220321
  2. PEGASYS [Suspect]
     Active Substance: PEGINTERFERON ALFA-2A
     Indication: Hereditary haemochromatosis
     Route: 065
     Dates: start: 20220328, end: 20220404
  3. PEGASYS [Suspect]
     Active Substance: PEGINTERFERON ALFA-2A
     Route: 065
     Dates: start: 20220411, end: 20220411
  4. HYDROXYUREA [Suspect]
     Active Substance: HYDROXYUREA
     Indication: Product used for unknown indication
     Route: 065
  5. MICONAZOLE [Concomitant]
     Active Substance: MICONAZOLE
  6. FLUCONAZOLE [Concomitant]
     Active Substance: FLUCONAZOLE
  7. NYSTATIN [Concomitant]
     Active Substance: NYSTATIN

REACTIONS (16)
  - Weight decreased [Recovering/Resolving]
  - Stomatitis [Recovered/Resolved]
  - Oral pain [Recovered/Resolved]
  - Oral candidiasis [Unknown]
  - Fungal foot infection [Recovered/Resolved]
  - Oral fungal infection [Unknown]
  - Oropharyngeal pain [Unknown]
  - Feeling cold [Unknown]
  - Therapeutic response unexpected [Recovered/Resolved]
  - Hypersensitivity [Recovered/Resolved]
  - Insomnia [Unknown]
  - Fatigue [Unknown]
  - Nausea [Unknown]
  - Fungal pharyngitis [Recovered/Resolved]
  - Off label use [Unknown]
  - Off label use [Unknown]
